FAERS Safety Report 19298160 (Version 1)
Quarter: 2021Q2

REPORT INFORMATION
  Report Type: Spontaneous
  Country: DE (occurrence: DE)
  Receive Date: 20210524
  Receipt Date: 20210524
  Transmission Date: 20210717
  Serious: Yes (Hospitalization, Other)
  Sender: FDA-Public Use
  Company Number: DE-OTSUKA-2021_017242

PATIENT
  Age: 52 Year
  Sex: Male

DRUGS (2)
  1. ARIPIPRAZOLE. [Suspect]
     Active Substance: ARIPIPRAZOLE
     Indication: SCHIZOPHRENIA
     Dosage: 15 MG, QD
     Route: 065
  2. HALOPERIDOL. [Suspect]
     Active Substance: HALOPERIDOL
     Indication: SCHIZOPHRENIA
     Dosage: 5 MG, QD
     Route: 065

REACTIONS (9)
  - Behaviour disorder [Recovered/Resolved]
  - Memory impairment [Recovered/Resolved]
  - Rebound effect [Recovered/Resolved]
  - Psychotic symptom [Recovered/Resolved]
  - Acute psychosis [Recovered/Resolved]
  - Therapy cessation [Unknown]
  - Delusion [Recovered/Resolved]
  - Insomnia [Recovered/Resolved]
  - Drug abuse [Unknown]
